FAERS Safety Report 18669090 (Version 1)
Quarter: 2020Q4

REPORT INFORMATION
  Report Type: Spontaneous
  Country: JP (occurrence: JP)
  Receive Date: 20201228
  Receipt Date: 20201228
  Transmission Date: 20210114
  Serious: Yes (Other)
  Sender: FDA-Public Use
  Company Number: NVSJ2019JP004558

PATIENT
  Age: 53 Year
  Sex: Male

DRUGS (3)
  1. TEGRETOL [Suspect]
     Active Substance: CARBAMAZEPINE
     Indication: INGROWING NAIL
     Dosage: UNK
     Route: 048
     Dates: start: 201906, end: 201907
  2. METHYCOBAL [Concomitant]
     Active Substance: METHYLCOBALAMIN
     Indication: INGROWING NAIL
     Dosage: UNK
     Route: 065
  3. LYRICA [Concomitant]
     Active Substance: PREGABALIN
     Indication: INGROWING NAIL
     Dosage: UNK
     Route: 065

REACTIONS (5)
  - Drug reaction with eosinophilia and systemic symptoms [Unknown]
  - Hepatic enzyme increased [Unknown]
  - Off label use [Unknown]
  - Pyrexia [Recovering/Resolving]
  - Rash pruritic [Recovering/Resolving]
